FAERS Safety Report 21765528 (Version 1)
Quarter: 2022Q4

REPORT INFORMATION
  Report Type: Spontaneous
  Country: US (occurrence: None)
  Receive Date: 20221221
  Receipt Date: 20221221
  Transmission Date: 20230113
  Serious: Yes (Hospitalization)
  Sender: FDA-Public Use
  Company Number: None

PATIENT
  Age: 73 Year
  Sex: Female

DRUGS (1)
  1. PROCRIT [Suspect]
     Active Substance: ERYTHROPOIETIN
     Dosage: OTHER QUANTITY : 20,000 UNITS;?OTHER FREQUENCY : OTHER;?
     Route: 058

REACTIONS (3)
  - Haemoglobin decreased [None]
  - Ulcer [None]
  - Colon cancer [None]

NARRATIVE: CASE EVENT DATE: 20221127
